FAERS Safety Report 7023895-4 (Version None)
Quarter: 2010Q4

REPORT INFORMATION
  Report Type: 
  Country: None (occurrence: None)
  Receive Date: 20101001
  Receipt Date: 20100920
  Transmission Date: 20110411
  Serious: Yes (Hospitalization)
  Sender: FDA-Public Use
  Company Number: TW-ELI_LILLY_AND_COMPANY-TW201006000893

PATIENT
  Age: 68 Year
  Sex: Male

DRUGS (2)
  1. GEMCITABINE HCL [Suspect]
     Indication: NON-SMALL CELL LUNG CANCER STAGE IIIB
     Dosage: 2163 MG, UNK
     Route: 042
     Dates: start: 20100325, end: 20100401
  2. CISPLATIN [Suspect]
     Indication: NON-SMALL CELL LUNG CANCER STAGE IIIB
     Dosage: 130 MG, UNK
     Route: 042
     Dates: start: 20100325, end: 20100426

REACTIONS (2)
  - PNEUMONIA [None]
  - PNEUMONIA KLEBSIELLA [None]
